FAERS Safety Report 6596217-0 (Version None)
Quarter: 2010Q1

REPORT INFORMATION
  Report Type: 
  Country: None (occurrence: None)
  Receive Date: 20100223
  Receipt Date: 20100217
  Transmission Date: 20100710
  Serious: Yes (Death)
  Sender: FDA-Public Use
  Company Number: US-SANOFI-AVENTIS-2010SA008466

PATIENT
  Age: 81 Year
  Sex: Female

DRUGS (15)
  1. MULTAQ [Suspect]
     Indication: ATRIAL FIBRILLATION
     Route: 048
     Dates: start: 20100101
  2. METOPROLOL TARTRATE [Concomitant]
  3. VALSARTAN [Concomitant]
  4. GLYBURIDE [Concomitant]
  5. JANUVIA [Concomitant]
  6. METFORMIN HCL [Concomitant]
  7. SIMVASTATIN [Concomitant]
  8. ALENDRONATE SODIUM [Concomitant]
  9. OMEPRAZOLE [Concomitant]
  10. DILTIAZEM HCL [Concomitant]
  11. DIGOXIN [Concomitant]
  12. WARFARIN SODIUM [Concomitant]
  13. FUROSEMIDE [Concomitant]
  14. SPIRONOLACTONE [Concomitant]
  15. OXYBUTYNIN [Concomitant]

REACTIONS (1)
  - SUDDEN DEATH [None]
